FAERS Safety Report 6044822-2 (Version None)
Quarter: 2009Q1

REPORT INFORMATION
  Report Type: 
  Country: None (occurrence: None)
  Receive Date: 20090120
  Receipt Date: 20080519
  Transmission Date: 20090719
  Serious: Yes (Hospitalization)
  Sender: FDA-Public Use
  Company Number: JP-GENENTECH-275715

PATIENT
  Sex: Male
  Weight: 64.7 kg

DRUGS (5)
  1. BEVACIZUMAB [Suspect]
     Indication: COLON CANCER METASTATIC
     Dosage: 5 MG/KG, UNK
     Route: 042
     Dates: start: 20070829, end: 20070927
  2. IRINOTECAN HYDROCHLORIDE [Suspect]
     Indication: COLON CANCER METASTATIC
     Dosage: 100 MG/M2, UNK
     Route: 042
     Dates: start: 20070829, end: 20070905
  3. FLUOROURACIL [Suspect]
     Indication: COLON CANCER METASTATIC
     Dosage: UNK
     Dates: start: 20070829, end: 20071012
  4. ISOVORIN [Suspect]
     Indication: COLON CANCER METASTATIC
     Dosage: 10 MG/M2, UNK
     Route: 042
     Dates: start: 20070829, end: 20071011
  5. AMLODINE [Concomitant]
     Indication: DRUG USE FOR UNKNOWN INDICATION

REACTIONS (2)
  - INTESTINAL OBSTRUCTION [None]
  - NEUTROPHIL COUNT DECREASED [None]
